FAERS Safety Report 18794483 (Version 2)
Quarter: 2021Q1

REPORT INFORMATION
  Report Type: Spontaneous
  Country: AU (occurrence: AU)
  Receive Date: 20210127
  Receipt Date: 20210129
  Transmission Date: 20210419
  Serious: Yes (Hospitalization, Other)
  Sender: FDA-Public Use
  Company Number: AU-MYLANLABS-2021M1004314

PATIENT
  Sex: Male

DRUGS (1)
  1. CLOZARIL [Suspect]
     Active Substance: CLOZAPINE
     Indication: SCHIZOPHRENIA
     Dosage: UNK
     Route: 048
     Dates: start: 20210107

REACTIONS (10)
  - Psychotic disorder [Unknown]
  - C-reactive protein increased [Unknown]
  - Antipsychotic drug level decreased [Unknown]
  - Blood lactate dehydrogenase increased [Unknown]
  - Blood creatinine increased [Unknown]
  - Tachycardia [Unknown]
  - Myocarditis [Unknown]
  - C-reactive protein decreased [Unknown]
  - Malaise [Unknown]
  - Endocarditis [Unknown]
